FAERS Safety Report 6869218-2 (Version None)
Quarter: 2010Q3

REPORT INFORMATION
  Report Type: 
  Country: None (occurrence: None)
  Receive Date: 20100722
  Receipt Date: 20080719
  Transmission Date: 20110219
  Serious: No
  Sender: FDA-Public Use
  Company Number: US-PFIZER INC-2008055009

PATIENT
  Age: 56 Year
  Sex: Female
  Weight: 77.3 kg

DRUGS (1)
  1. CHANTIX [Suspect]
     Indication: SMOKING CESSATION THERAPY
     Route: 048
     Dates: start: 20080401, end: 20080501

REACTIONS (4)
  - ABDOMINAL PAIN [None]
  - ANGER [None]
  - DENTAL CARE [None]
  - DEPRESSION [None]
